FAERS Safety Report 9413757 (Version 2)
Quarter: 2013Q3

REPORT INFORMATION
  Report Type: Spontaneous
  Country: IT (occurrence: IT)
  Receive Date: 20130722
  Receipt Date: 20130904
  Transmission Date: 20140515
  Serious: Yes (Hospitalization)
  Sender: FDA-Public Use
  Company Number: IT-ROCHE-1251594

PATIENT
  Age: 45 Year
  Sex: Female

DRUGS (13)
  1. MYCOPHENOLATE MOFETIL [Suspect]
     Indication: HEART TRANSPLANT
     Route: 065
     Dates: start: 20130301, end: 20130607
  2. COUMADIN [Concomitant]
  3. PROGRAF [Concomitant]
  4. ZYLORIC [Concomitant]
  5. SERETIDE [Concomitant]
  6. LASIX [Concomitant]
  7. DELTACORTENE [Concomitant]
  8. PLAQUENIL [Concomitant]
  9. PANTORC [Concomitant]
  10. MAG 2 [Concomitant]
  11. ATORVASTATINA [Concomitant]
  12. BISOPROLOL HEMIFUMARATE [Concomitant]
  13. POTASSIUM CHLORIDE [Concomitant]
     Route: 065

REACTIONS (1)
  - Polyarthritis [Recovered/Resolved]
